FAERS Safety Report 4846276-8 (Version None)
Quarter: 2005Q4

REPORT INFORMATION
  Report Type: 
  Country: None (occurrence: None)
  Receive Date: 20051130
  Receipt Date: 20051116
  Transmission Date: 20060501
  Serious: Yes (Death)
  Sender: FDA-Public Use
  Company Number: US016177

PATIENT
  Age: 24 Year

DRUGS (5)
  1. GABITRIL [Suspect]
  2. DIAZEPAM [Suspect]
  3. SERTRALINE HCL [Suspect]
  4. OLANZAPINE [Suspect]
  5. QUETIAPINE FUMARATE [Suspect]

REACTIONS (5)
  - CARDIAC ARREST [None]
  - COMPLETED SUICIDE [None]
  - DRUG TOXICITY [None]
  - MULTIPLE DRUG OVERDOSE INTENTIONAL [None]
  - RESPIRATORY ARREST [None]
